FAERS Safety Report 8858218 (Version 1)
Quarter: 2012Q4

REPORT INFORMATION
  Report Type: 
  Country: US (occurrence: US)
  Receive Date: 20121024
  Receipt Date: 20121024
  Transmission Date: 20130627
  Serious: No
  Sender: FDA-Public Use
  Company Number: US-AMGEN-USASP2011068079

PATIENT
  Age: 56 Year
  Sex: Female
  Weight: 65 kg

DRUGS (13)
  1. ENBREL [Suspect]
     Indication: PRODUCT USED FOR UNKNOWN INDICATION
     Dosage: 50 mg, qwk
     Route: 058
  2. TORSEMIDE [Concomitant]
     Dosage: 20 mg, UNK
  3. AMLODIPINE [Concomitant]
     Dosage: 10 mg, UNK
  4. METHOTREXATE [Concomitant]
     Dosage: 2.5 mg, UNK
  5. PRAVASTATIN [Concomitant]
     Dosage: 10 mg, UNK
  6. METFORMIN [Concomitant]
     Dosage: 500 mg, UNK
  7. OMEPRAZOLE [Concomitant]
     Dosage: 10 mg, UNK
  8. METOPROLOL [Concomitant]
     Dosage: 25 mg, UNK
  9. SPIRONOLACTON [Concomitant]
     Dosage: 25 mg, UNK
  10. LOSARTAN POTASSIUM [Concomitant]
     Dosage: 100 mg, UNK
  11. VITAMIN B 12 [Concomitant]
     Dosage: UNK
  12. ASPIRIN [Concomitant]
     Dosage: 81 mg, UNK
  13. LEVOTHYROXIN [Concomitant]
     Dosage: 100 mug, UNK

REACTIONS (2)
  - Cough [Unknown]
  - Sinusitis [Unknown]
